FAERS Safety Report 11365206 (Version 1)
Quarter: 2015Q3

REPORT INFORMATION
  Report Type: Report from Study
  Country: US (occurrence: US)
  Receive Date: 20150811
  Receipt Date: 20150811
  Transmission Date: 20151125
  Serious: Yes (Life-Threatening)
  Sender: FDA-Public Use
  Company Number: US-ACTELION-A-NJ2015-122095

PATIENT
  Age: 72 Year
  Sex: Male

DRUGS (1)
  1. MACITENTAN [Suspect]
     Active Substance: MACITENTAN
     Indication: CONNECTIVE TISSUE DISORDER
     Dosage: 10 MG, QD
     Route: 048
     Dates: start: 20150217

REACTIONS (4)
  - Peripheral swelling [Unknown]
  - Lip swelling [Unknown]
  - Swollen tongue [Unknown]
  - Swelling face [Unknown]

NARRATIVE: CASE EVENT DATE: 20150730
